FAERS Safety Report 12599924 (Version 1)
Quarter: 2016Q3

REPORT INFORMATION
  Report Type: Spontaneous
  Country: CN (occurrence: CN)
  Receive Date: 20160727
  Receipt Date: 20160727
  Transmission Date: 20161109
  Serious: Yes (Hospitalization)
  Sender: FDA-Public Use
  Company Number: CN-MYLANLABS-2016M1030571

PATIENT

DRUGS (3)
  1. PHENYTOIN. [Suspect]
     Active Substance: PHENYTOIN
     Indication: EPILEPSY
     Dosage: 200MG/DAY
     Route: 048
  2. PHENYTOIN. [Suspect]
     Active Substance: PHENYTOIN
     Dosage: 400MG/DAY
     Route: 048
  3. CARBAMAZEPINE. [Concomitant]
     Active Substance: CARBAMAZEPINE
     Indication: EPILEPSY
     Dosage: 0.1G / DAY
     Route: 065

REACTIONS (9)
  - Toxicity to various agents [Recovering/Resolving]
  - Vomiting [Unknown]
  - Hypersomnia [Unknown]
  - Dysarthria [Unknown]
  - Gait disturbance [Unknown]
  - Overdose [Recovering/Resolving]
  - Incorrect dose administered [Recovering/Resolving]
  - Dizziness [Recovering/Resolving]
  - Ataxia [Unknown]
